FAERS Safety Report 7964137-2 (Version None)
Quarter: 2011Q4

REPORT INFORMATION
  Report Type: 
  Country: None (occurrence: None)
  Receive Date: 20111121
  Receipt Date: 20110914
  Transmission Date: 20120403
  Serious: No
  Sender: FDA-Public Use
  Company Number: 1000023852

PATIENT
  Age: 50 Year
  Sex: Female

DRUGS (8)
  1. VIIBRYD [Suspect]
     Dosage: 20 MG (20 MG, 1 IN 1 D),ORAL
     Route: 048
     Dates: start: 20110101
  2. NEURONTIN [Concomitant]
  3. INDERAL [Concomitant]
  4. VIIBRYD [Suspect]
     Dosage: 10 MG (10 MG, 1 IN 1 D),ORAL,  20 MG (20 MG, 1 IN 1 D),ORAL
     Route: 048
     Dates: start: 20110101, end: 20110101
  5. VIIBRYD [Suspect]
     Dosage: 10 MG (10 MG, 1 IN 1 D),ORAL,  20 MG (20 MG, 1 IN 1 D),ORAL
     Route: 048
     Dates: start: 20110101, end: 20110101
  6. VIIBRYD [Suspect]
     Dosage: 40 MG (10 MG, 1 IN 1 D),ORAL
     Route: 048
     Dates: start: 20110101, end: 20110101
  7. KLONOPIN (CLONAZEPAM HYDROCHLORIDE) [Concomitant]
  8. TAPAZOLE [Concomitant]

REACTIONS (1)
  - RASH PRURITIC [None]
